FAERS Safety Report 5924324-1 (Version None)
Quarter: 2008Q4

REPORT INFORMATION
  Report Type: 
  Country: None (occurrence: None)
  Receive Date: 20081020
  Receipt Date: 20081008
  Transmission Date: 20090506
  Serious: Yes (Hospitalization)
  Sender: FDA-Public Use
  Company Number: US-AMGEN-US312388

PATIENT
  Sex: Female

DRUGS (8)
  1. PANITUMUMAB [Suspect]
     Indication: SQUAMOUS CELL CARCINOMA
     Route: 042
     Dates: start: 20080926
  2. CISPLATIN [Concomitant]
     Route: 042
     Dates: start: 20080926
  3. FLUOROURACIL [Concomitant]
     Route: 042
     Dates: start: 20080926
  4. MORPHINE [Concomitant]
     Route: 048
  5. XANAX [Concomitant]
     Route: 048
  6. NEXIUM [Concomitant]
     Route: 048
  7. SINGULAIR [Concomitant]
  8. ALBUTEROL [Concomitant]
     Route: 055

REACTIONS (4)
  - COUGH [None]
  - DEHYDRATION [None]
  - PYREXIA [None]
  - VOMITING [None]
